FAERS Safety Report 8582950-8 (Version None)
Quarter: 2012Q3

REPORT INFORMATION
  Report Type: 
  Country: None (occurrence: None)
  Receive Date: 20120809
  Receipt Date: 20120803
  Transmission Date: 20120928
  Serious: Yes (Other)
  Sender: FDA-Public Use
  Company Number: US-PFIZER INC-2012174063

PATIENT
  Sex: Male
  Weight: 68.027 kg

DRUGS (3)
  1. AZOPT [Concomitant]
     Dosage: UNK
  2. ISTALOL [Concomitant]
     Dosage: UNK
  3. LATANOPROST [Suspect]
     Indication: OPEN ANGLE GLAUCOMA
     Dosage: 1 GTT IN THE RIGHT EYE
     Route: 047
     Dates: start: 20050101

REACTIONS (4)
  - OROPHARYNGEAL SWELLING [None]
  - INTRAOCULAR PRESSURE INCREASED [None]
  - POOR QUALITY DRUG ADMINISTERED [None]
  - INCORRECT PRODUCT STORAGE [None]
